FAERS Safety Report 8173620-9 (Version None)
Quarter: 2012Q1

REPORT INFORMATION
  Report Type: 
  Country: None (occurrence: None)
  Receive Date: 20120227
  Receipt Date: 20120214
  Transmission Date: 20120608
  Serious: Yes (Other)
  Sender: FDA-Public Use
  Company Number: 20120094

PATIENT
  Age: 60 Year
  Sex: Female

DRUGS (1)
  1. AMINOCAPROIC ACID [Suspect]
     Indication: PROCEDURAL HAEMORRHAGE
     Dosage: 10 G BOLUS : 1.0 G/HR

REACTIONS (2)
  - DIALYSIS [None]
  - HYPERKALAEMIA [None]
